FAERS Safety Report 6887355-3 (Version None)
Quarter: 2010Q3

REPORT INFORMATION
  Report Type: 
  Country: None (occurrence: None)
  Receive Date: 20100730
  Receipt Date: 20091209
  Transmission Date: 20110219
  Serious: No
  Sender: FDA-Public Use
  Company Number: A0809539A

PATIENT
  Age: 59 Year
  Sex: Female

DRUGS (6)
  1. SUMATRIPTAN SUCCINATE [Suspect]
     Indication: MIGRAINE
     Dosage: 100MG AS REQUIRED
     Route: 048
     Dates: start: 20090924
  2. PRILOSEC [Suspect]
     Route: 048
  3. EXTRA STRENGTH TYLENOL [Suspect]
  4. HERBAL SUPPLEMENTS [Concomitant]
  5. PROZAC [Concomitant]
  6. SYNTHROID [Concomitant]

REACTIONS (5)
  - BONE PAIN [None]
  - DRUG INEFFECTIVE [None]
  - DYSPEPSIA [None]
  - PAIN IN EXTREMITY [None]
  - PRODUCT QUALITY ISSUE [None]
